FAERS Safety Report 14578456 (Version 1)
Quarter: 2018Q1

REPORT INFORMATION
  Report Type: Spontaneous
  Country: US (occurrence: US)
  Receive Date: 20180227
  Receipt Date: 20180227
  Transmission Date: 20180509
  Serious: No
  Sender: FDA-Public Use
  Company Number: US-PFIZER INC-2018080871

PATIENT
  Age: 57 Year
  Sex: Female
  Weight: 81.65 kg

DRUGS (1)
  1. LYRICA [Suspect]
     Active Substance: PREGABALIN
     Indication: NEUROPATHY PERIPHERAL
     Dosage: 150 MG, ONCE DAILY
     Route: 048
     Dates: start: 201801

REACTIONS (4)
  - Drug effect incomplete [Unknown]
  - Dyskinesia [Unknown]
  - Therapeutic response unexpected [Unknown]
  - Pre-existing condition improved [Unknown]
